FAERS Safety Report 9046246 (Version 1)
Quarter: 2013Q1

REPORT INFORMATION
  Report Type: Spontaneous
  Country: US (occurrence: US)
  Receive Date: 20130201
  Receipt Date: 20130201
  Transmission Date: 20140127
  Serious: No
  Sender: FDA-Public Use
  Company Number: US-009507513-1301USA014386

PATIENT
  Sex: Female

DRUGS (9)
  1. VICTRELIS [Suspect]
     Indication: HEPATITIS C
     Dosage: UNK
     Dates: start: 20121128
  2. PEGASYS [Suspect]
  3. RIBASPHERE [Suspect]
  4. CITALOPRAM [Concomitant]
  5. LEVEMIR [Concomitant]
  6. GABAPENTIN [Concomitant]
  7. NOVOLOG [Concomitant]
  8. PROCRIT [Concomitant]
  9. PROMACTA [Concomitant]

REACTIONS (2)
  - Platelet count decreased [Unknown]
  - Red blood cell count decreased [Unknown]
